FAERS Safety Report 17163504 (Version 1)
Quarter: 2019Q4

REPORT INFORMATION
  Report Type: Report from Study
  Country: None (occurrence: CH)
  Receive Date: 20191217
  Receipt Date: 20191217
  Transmission Date: 20200122
  Serious: Yes (Other)
  Sender: FDA-Public Use
  Company Number: CH-UNICHEM PHARMACEUTICALS (USA) INC-UCM201912-000833

PATIENT
  Age: 25 Year
  Sex: Female

DRUGS (3)
  1. CLONAZEPAM. [Concomitant]
     Active Substance: CLONAZEPAM
     Indication: STATUS EPILEPTICUS
  2. PHENYTOIN. [Concomitant]
     Active Substance: PHENYTOIN
     Indication: STATUS EPILEPTICUS
  3. TOPIRAMATE. [Suspect]
     Active Substance: TOPIRAMATE
     Indication: STATUS EPILEPTICUS
     Dosage: MAXIMUM DOSE 800 MG/DAY
     Route: 048

REACTIONS (3)
  - Sepsis [Unknown]
  - Nephrolithiasis [Unknown]
  - Therapy non-responder [Unknown]
